FAERS Safety Report 20000090 (Version 1)
Quarter: 2021Q4

REPORT INFORMATION
  Report Type: Spontaneous
  Country: US (occurrence: US)
  Receive Date: 20211027
  Receipt Date: 20211027
  Transmission Date: 20220303
  Serious: No
  Sender: FDA-Public Use
  Company Number: US-ORGANON-O2110USA002103

PATIENT
  Age: 69 Year
  Sex: Female

DRUGS (1)
  1. DULERA [Suspect]
     Active Substance: FORMOTEROL FUMARATE DIHYDRATE\MOMETASONE FUROATE
     Dosage: AS NEEDED

REACTIONS (5)
  - Device malfunction [Unknown]
  - Poor quality device used [Unknown]
  - No adverse event [Unknown]
  - Product use issue [Unknown]
  - Wrong technique in product usage process [Unknown]

NARRATIVE: CASE EVENT DATE: 20211017
